FAERS Safety Report 7015940-7 (Version None)
Quarter: 2010Q3

REPORT INFORMATION
  Report Type: 
  Country: None (occurrence: None)
  Receive Date: 20100927
  Receipt Date: 20090914
  Transmission Date: 20110219
  Serious: No
  Sender: FDA-Public Use
  Company Number: US-ASTRAZENECA-2009UW12984

PATIENT
  Age: 70 Year
  Sex: Female
  Weight: 107 kg

DRUGS (4)
  1. ARIMIDEX [Suspect]
     Indication: NEOPLASM MALIGNANT
     Route: 048
     Dates: end: 20090301
  2. PLAVIX [Concomitant]
  3. METOPROLOL TARTRATE [Concomitant]
  4. TYLENOL (CAPLET) [Concomitant]

REACTIONS (3)
  - ARTHRALGIA [None]
  - DRUG INTOLERANCE [None]
  - PAIN IN EXTREMITY [None]
